FAERS Safety Report 6985159-4 (Version None)
Quarter: 2010Q3

REPORT INFORMATION
  Report Type: 
  Country: None (occurrence: None)
  Receive Date: 20100915
  Receipt Date: 20100907
  Transmission Date: 20110219
  Serious: Yes (Hospitalization)
  Sender: FDA-Public Use
  Company Number: IN-ROCHE-724292

PATIENT
  Sex: Male
  Weight: 56 kg

DRUGS (5)
  1. BEVACIZUMAB [Suspect]
     Indication: METASTATIC RENAL CELL CARCINOMA
     Dosage: DOSAGE FORM NOT PROVIDED. LAST DOSE PRIOR TO SAE: 25 AUGUST 2010.
     Route: 042
     Dates: start: 20100224, end: 20100308
  2. BEVACIZUMAB [Suspect]
     Dosage: LAST DOSE PRIOR TO SAE: 25 AUGUST 2010.
     Route: 042
     Dates: end: 20100901
  3. TEMSIROLIMUS [Suspect]
     Indication: METASTATIC RENAL CELL CARCINOMA
     Dosage: DOSAGE FORM NOT PROVIDED.
     Route: 042
     Dates: start: 20100224, end: 20100408
  4. TEMSIROLIMUS [Suspect]
     Dosage: LAST DOSE PRIOR TO SAE: 25 AUGUST 2010.
     Route: 042
     Dates: end: 20100901
  5. AMLODIPINE [Concomitant]
     Route: 048
     Dates: start: 20100102

REACTIONS (1)
  - CHOLECYSTITIS ACUTE [None]
